FAERS Safety Report 6232901-6 (Version None)
Quarter: 2009Q2

REPORT INFORMATION
  Report Type: 
  Country: None (occurrence: None)
  Receive Date: 20090612
  Receipt Date: 20090612
  Transmission Date: 20091009
  Serious: Yes (Hospitalization)
  Sender: FDA-Public Use
  Company Number: None

PATIENT
  Age: 54 Year
  Sex: Male
  Weight: 86.1834 kg

DRUGS (1)
  1. ROMIPLOSTIM -NPLATE- 250 MCG AMGEN [Suspect]
     Indication: IDIOPATHIC THROMBOCYTOPENIC PURPURA
     Dosage: 100 MCG - 200 MCG ELEVEN DOSES OVER 11 WEEKS SQ
     Route: 058
     Dates: start: 20081217, end: 20090429

REACTIONS (1)
  - BLEEDING VARICOSE VEIN [None]
